FAERS Safety Report 16528453 (Version 1)
Quarter: 2019Q3

REPORT INFORMATION
  Report Type: Spontaneous
  Country: IT (occurrence: IT)
  Receive Date: 20190703
  Receipt Date: 20190703
  Transmission Date: 20191004
  Serious: Yes (Hospitalization)
  Sender: FDA-Public Use
  Company Number: IT-ASTRAZENECA-2019SE92332

PATIENT
  Age: 80 Year
  Sex: Female

DRUGS (8)
  1. GABAPENTIN. [Suspect]
     Active Substance: GABAPENTIN
     Indication: DIABETIC NEUROPATHY
     Dosage: 7200.0MG ONCE/SINGLE ADMINISTRATION
     Route: 048
     Dates: start: 20190409, end: 20190409
  2. LASIX [Suspect]
     Active Substance: FUROSEMIDE
     Indication: HYPERTENSION
     Dosage: 300.0MG ONCE/SINGLE ADMINISTRATION
     Route: 048
     Dates: start: 20190409, end: 20190409
  3. STILNOX [Suspect]
     Active Substance: ZOLPIDEM TARTRATE
     Indication: INSOMNIA
     Dosage: 60.0MG ONCE/SINGLE ADMINISTRATION
     Route: 048
     Dates: start: 20190409, end: 20190409
  4. INSULIN [Concomitant]
     Active Substance: INSULIN NOS
  5. PAROXETINE. [Suspect]
     Active Substance: PAROXETINE
     Indication: DEPRESSION
     Dosage: 120.0MG ONCE/SINGLE ADMINISTRATION
     Route: 048
     Dates: start: 20190409, end: 20190409
  6. RANITIDINE. [Suspect]
     Active Substance: RANITIDINE
     Indication: HYPERCHLORHYDRIA
     Dosage: GENERIC 450 MG ONCE/SINGLE ADMINISTRATION
     Route: 048
     Dates: start: 20190409, end: 20190409
  7. SEROQUEL [Suspect]
     Active Substance: QUETIAPINE FUMARATE
     Indication: PERSONALITY DISORDER
     Dosage: 1200.0MG ONCE/SINGLE ADMINISTRATION
     Route: 048
     Dates: start: 20190409, end: 20190409
  8. TICLOPIDINE [Suspect]
     Active Substance: TICLOPIDINE
     Indication: TRANSIENT ISCHAEMIC ATTACK
     Dosage: 3000.0MG ONCE/SINGLE ADMINISTRATION
     Route: 048
     Dates: start: 20190409, end: 20190409

REACTIONS (2)
  - Sopor [Recovering/Resolving]
  - Depressed level of consciousness [Recovering/Resolving]

NARRATIVE: CASE EVENT DATE: 20190409
